FAERS Safety Report 6295673-5 (Version None)
Quarter: 2009Q3

REPORT INFORMATION
  Report Type: 
  Country: None (occurrence: None)
  Receive Date: 20090804
  Receipt Date: 20090724
  Transmission Date: 20100115
  Serious: Yes (Hospitalization, Other)
  Sender: FDA-Public Use
  Company Number: US-ELI_LILLY_AND_COMPANY-US200905004567

PATIENT
  Sex: Female
  Weight: 79.365 kg

DRUGS (5)
  1. PEMETREXED [Suspect]
     Indication: SQUAMOUS CELL CARCINOMA
     Dosage: 500 MG/M2, OTHER
     Route: 042
     Dates: start: 20090423
  2. BEVACIZUMAB [Suspect]
     Indication: SQUAMOUS CELL CARCINOMA
     Dosage: 15 MG/KG, OTHER
     Route: 042
     Dates: start: 20090423
  3. FOLIC ACID [Concomitant]
  4. VITAMIN B-12 [Concomitant]
  5. DECADRON [Concomitant]
     Dosage: UNK, OTHER

REACTIONS (3)
  - FATIGUE [None]
  - NAUSEA [None]
  - PNEUMONIA [None]
